FAERS Safety Report 8004439-7 (Version None)
Quarter: 2011Q4

REPORT INFORMATION
  Report Type: 
  Country: None (occurrence: None)
  Receive Date: 20111221
  Receipt Date: 20111221
  Transmission Date: 20120403
  Serious: Yes (Disabling)
  Sender: FDA-Public Use
  Company Number: None

PATIENT
  Sex: Female
  Weight: 52.1637 kg

DRUGS (3)
  1. METOPROLOL SUCCINATE [Concomitant]
  2. XANAX [Concomitant]
  3. SIMVASTATIN [Suspect]
     Indication: BLOOD CHOLESTEROL INCREASED
     Dosage: 1 TABLET A DAY @ PM PO
     Route: 048
     Dates: start: 20080703

REACTIONS (2)
  - MYALGIA [None]
  - PRODUCT SUBSTITUTION ISSUE [None]
